FAERS Safety Report 25613679 (Version 1)
Quarter: 2025Q3

REPORT INFORMATION
  Report Type: Spontaneous
  Country: US (occurrence: US)
  Receive Date: 20250728
  Receipt Date: 20250728
  Transmission Date: 20251020
  Serious: Yes (Other)
  Sender: ORGANON
  Company Number: US-ORGANON-O2507USA001971

PATIENT
  Sex: Female

DRUGS (3)
  1. NEXPLANON [Suspect]
     Active Substance: ETONOGESTREL
     Route: 059
  2. NEXPLANON [Concomitant]
     Active Substance: ETONOGESTREL
     Route: 059
  3. NEXPLANON [Concomitant]
     Active Substance: ETONOGESTREL
     Route: 059

REACTIONS (1)
  - Menometrorrhagia [Not Recovered/Not Resolved]
